FAERS Safety Report 5585570-2 (Version None)
Quarter: 2008Q1

REPORT INFORMATION
  Report Type: 
  Country: None (occurrence: None)
  Receive Date: 20080109
  Receipt Date: 20080103
  Transmission Date: 20080703
  Serious: Yes (Other)
  Sender: FDA-Public Use
  Company Number: B0389041A

PATIENT
  Sex: Female

DRUGS (4)
  1. SEROXAT [Suspect]
     Route: 065
     Dates: start: 19990804
  2. ALCOHOL [Suspect]
     Route: 065
  3. CIPRAMIL [Concomitant]
     Dates: start: 20020903
  4. DIAZEPAM [Concomitant]
     Dates: start: 20001208

REACTIONS (8)
  - HEADACHE [None]
  - INSOMNIA [None]
  - INTENTIONAL SELF-INJURY [None]
  - MALAISE [None]
  - NAUSEA [None]
  - OVERDOSE [None]
  - SUICIDAL BEHAVIOUR [None]
  - WITHDRAWAL SYNDROME [None]
